FAERS Safety Report 4899159-1 (Version None)
Quarter: 2006Q1

REPORT INFORMATION
  Report Type: 
  Country: None (occurrence: None)
  Receive Date: 20060125
  Receipt Date: 20060116
  Transmission Date: 20060701
  Serious: No
  Sender: FDA-Public Use
  Company Number: STAR-014-S01USA

PATIENT
  Age: 39 Year
  Sex: Male
  Weight: 90.7194 kg

DRUGS (1)
  1. CARTICEL [Suspect]
     Dosage: 1 NA ONCE IS

REACTIONS (2)
  - GRAFT DELAMINATION [None]
  - SCAR [None]
